FAERS Safety Report 10898051 (Version 2)
Quarter: 2016Q1

REPORT INFORMATION
  Report Type: Report from Study
  Country: US (occurrence: US)
  Receive Date: 20150309
  Receipt Date: 20160309
  Transmission Date: 20160525
  Serious: No
  Sender: FDA-Public Use
  Company Number: US-ABBVIE-15P-163-1337492-00

PATIENT
  Age: 46 Year
  Sex: Female

DRUGS (4)
  1. ORACEA [Concomitant]
     Active Substance: DOXYCYCLINE
     Indication: ROSACEA
  2. ALLEGRA [Concomitant]
     Active Substance: FEXOFENADINE HYDROCHLORIDE
     Indication: PRODUCT USED FOR UNKNOWN INDICATION
  3. LUPRON DEPOT [Suspect]
     Active Substance: LEUPROLIDE ACETATE
     Indication: ENDOMETRIOSIS
     Route: 065
     Dates: start: 20141231
  4. FLONASE [Concomitant]
     Active Substance: FLUTICASONE PROPIONATE
     Indication: HYPERSENSITIVITY
     Route: 045

REACTIONS (7)
  - Drug ineffective [Unknown]
  - Pain [Recovered/Resolved]
  - Pelvic pain [Not Recovered/Not Resolved]
  - Nausea [Recovered/Resolved]
  - Metrorrhagia [Unknown]
  - Drug administration error [Unknown]
  - Menorrhagia [Recovered/Resolved]

NARRATIVE: CASE EVENT DATE: 20150102
